FAERS Safety Report 9697796 (Version 2)
Quarter: 2014Q2

REPORT INFORMATION
  Report Type: Spontaneous
  Country: GB (occurrence: None)
  Receive Date: 20131112
  Receipt Date: 20140423
  Transmission Date: 20141212
  Serious: Yes (Life-Threatening, Hospitalization)
  Sender: FDA-Public Use
  Company Number: GAM-344-13-GB

PATIENT
  Age: 89 Year
  Sex: Female

DRUGS (5)
  1. OCTAGAM [Suspect]
     Indication: SEPSIS
     Dosage: 1 G INTRAVENOUS (NOT OTHERWISE SPECIFIED)
     Route: 042
     Dates: start: 20131022, end: 20131022
  2. VANCOMYCIN [Concomitant]
  3. PIPERACILLIN AND TAZOBACTAM [Concomitant]
  4. METRONIDAZOLE [Concomitant]
  5. BETA BLOCKER [Concomitant]

REACTIONS (5)
  - Anaphylactic reaction [None]
  - Myocardial infarction [None]
  - Clostridium difficile infection [None]
  - Respiratory rate increased [None]
  - Hypotension [None]
